FAERS Safety Report 9181086 (Version 1)
Quarter: 2013Q1

REPORT INFORMATION
  Report Type: Spontaneous
  Country: US (occurrence: US)
  Receive Date: 20130322
  Receipt Date: 20130322
  Transmission Date: 20140127
  Serious: Yes (Other)
  Sender: FDA-Public Use
  Company Number: US-MYLANLABS-2012S1003634

PATIENT
  Age: 65 Year
  Sex: Female
  Weight: 61.24 kg

DRUGS (2)
  1. EMSAM [Suspect]
     Indication: DEPRESSION
     Route: 062
     Dates: start: 20111024, end: 20120222
  2. CLONAZEPAM [Concomitant]
     Dosage: 3-4 TIMES DAILY
     Route: 048

REACTIONS (3)
  - Application site reaction [Not Recovered/Not Resolved]
  - Application site erythema [Not Recovered/Not Resolved]
  - Application site pruritus [Not Recovered/Not Resolved]
